FAERS Safety Report 7924606-8 (Version None)
Quarter: 2011Q4

REPORT INFORMATION
  Report Type: 
  Country: None (occurrence: None)
  Receive Date: 20111117
  Receipt Date: 20110324
  Transmission Date: 20120403
  Serious: No
  Sender: FDA-Public Use
  Company Number: US-AMGEN-USASP2011015998

PATIENT
  Age: 38 Year
  Sex: Female
  Weight: 85.261 kg

DRUGS (8)
  1. ENBREL [Suspect]
     Indication: PRODUCT USED FOR UNKNOWN INDICATION
     Dosage: 50 MG, UNK
  2. MELOXICAM [Concomitant]
     Dosage: 15 MG, UNK
  3. LEVOTHYROXINE SODIUM [Concomitant]
     Dosage: 112 MUG, UNK
  4. BUPROPION HCL [Concomitant]
     Dosage: 100 MG, UNK
  5. MULTI-VITAMIN [Concomitant]
     Dosage: UNK
  6. VITAMIN B6 [Concomitant]
     Dosage: 250 MG, UNK
  7. METHOTREXATE [Concomitant]
     Dosage: 2.5 MG, UNK
  8. FOLIC ACID [Concomitant]
     Dosage: 1 MG, UNK

REACTIONS (2)
  - FATIGUE [None]
  - WHITE BLOOD CELL COUNT DECREASED [None]
